FAERS Safety Report 11606894 (Version 1)
Quarter: 2015Q4

REPORT INFORMATION
  Report Type: Spontaneous
  Country: US (occurrence: US)
  Receive Date: 20151007
  Receipt Date: 20151007
  Transmission Date: 20160304
  Serious: Yes (Hospitalization, Other)
  Sender: FDA-Public Use
  Company Number: US-ELI_LILLY_AND_COMPANY-US201510001110

PATIENT
  Age: 64 Year
  Sex: Male

DRUGS (2)
  1. HUMALOG [Suspect]
     Active Substance: INSULIN LISPRO
     Indication: DIABETES MELLITUS
     Dosage: UNK UNK, PRN
     Route: 065
     Dates: start: 201210
  2. LANTUS [Concomitant]
     Active Substance: INSULIN GLARGINE

REACTIONS (11)
  - Ankle fracture [Unknown]
  - Tremor [Unknown]
  - Blood glucose increased [Unknown]
  - Tendon rupture [Not Recovered/Not Resolved]
  - Blood glucose decreased [Unknown]
  - Injection site laceration [Unknown]
  - Dizziness [Unknown]
  - Osteomyelitis [Recovered/Resolved]
  - Haemorrhage [Unknown]
  - Injection site pain [Unknown]
  - Vision blurred [Unknown]

NARRATIVE: CASE EVENT DATE: 201210
